FAERS Safety Report 9904924 (Version 1)
Quarter: 2013Q2

REPORT INFORMATION
  Report Type: Spontaneous
  Country: US (occurrence: None)
  Receive Date: 20130305
  Receipt Date: 20130305
  Transmission Date: 20140414
  Serious: Yes (Other)
  Sender: FDA-Public Use
  Company Number: 1000041099

PATIENT
  Age: 84 Year
  Sex: Male

DRUGS (16)
  1. DALIRESP [Suspect]
     Indication: BRONCHITIS
     Route: 048
     Dates: start: 20121211
  2. BYSTOLIC (NEBIVOLOL HYDROCHLORIDE) (NEBIVOLOL HYDROCHLORIDE) [Concomitant]
  3. HYDRALAZINE (HYDRALAZINE) (HYDRALAZINE) [Concomitant]
  4. ISOSORBIDE (ISOSORBIDE) (ISOSORBIDE) [Concomitant]
  5. ADVAIR (SERETIDE) (SERETIDE) [Concomitant]
  6. LASIX (FUROSEMIDE) (FUROSEMIDE) [Concomitant]
  7. POTASSIUM (POTASSIUM) (POTASSIUM) [Concomitant]
  8. PROTONIX (PANTOPRAZOLE SODIUM SESQUIHYDRATE) (PANTOPRAZOLE SODIUM SESQUIHYDRATE) [Concomitant]
  9. LOSARTAN (LOSARTAN) (LOSARTAN) [Concomitant]
  10. DOXAZOSIN (DOXAZOSIN) (DOXAZOSIN) [Concomitant]
  11. CLONIDINE (CLONIDINE) (CLONIDINE) [Concomitant]
  12. AMARYL (GLIMEPIRIDE) (GLIMEPIRIDE) [Concomitant]
  13. SIMVASTATIN (SIMVASTATIN) (SIMVASTATIN) [Concomitant]
  14. METFORMIN (METFORMIN) (METFORMIN) [Concomitant]
  15. AMLODIPINE (AMLODIPINE) (AMLODIPINE) [Concomitant]
  16. PREDNISONE (PREDNISONE) (PREDNISONE) [Concomitant]

REACTIONS (4)
  - Insomnia [None]
  - Headache [None]
  - Chills [None]
  - Off label use [None]
